FAERS Safety Report 8123347-4 (Version None)
Quarter: 2012Q1

REPORT INFORMATION
  Report Type: 
  Country: None (occurrence: None)
  Receive Date: 20120208
  Receipt Date: 20120206
  Transmission Date: 20120608
  Serious: Yes (Other)
  Sender: FDA-Public Use
  Company Number: US-PFIZER INC-2012007198

PATIENT
  Sex: Female
  Weight: 77.098 kg

DRUGS (7)
  1. CHANTIX [Suspect]
     Dosage: 1 MG, 2X/DAY
     Route: 048
     Dates: start: 20120101, end: 20120101
  2. CHANTIX [Suspect]
     Dosage: 1MG, DAILY
     Route: 048
     Dates: start: 20120101, end: 20120101
  3. IMIPRAMINE [Concomitant]
     Indication: PAIN
     Dosage: UNK, TWO TIMES A DAY
  4. CHANTIX [Suspect]
     Dosage: 0.5 MG, 2X/DAY
     Route: 048
     Dates: start: 20120101, end: 20120101
  5. CHANTIX [Suspect]
     Dosage: UNK
     Route: 048
     Dates: start: 20120101, end: 20120101
  6. CHANTIX [Suspect]
     Dosage: UNK
     Route: 048
     Dates: start: 20120101, end: 20120131
  7. CHANTIX [Suspect]
     Indication: SMOKING CESSATION THERAPY
     Dosage: 0.5 MG, DAILY
     Route: 048
     Dates: start: 20120104, end: 20120101

REACTIONS (10)
  - DECREASED APPETITE [None]
  - CRYING [None]
  - WEIGHT DECREASED [None]
  - ABNORMAL DREAMS [None]
  - AGITATION [None]
  - DEPRESSED MOOD [None]
  - SLEEP DISORDER [None]
  - DYSGEUSIA [None]
  - CHEST PAIN [None]
  - PANIC ATTACK [None]
